FAERS Safety Report 19123550 (Version 1)
Quarter: 2021Q2

REPORT INFORMATION
  Report Type: Spontaneous
  Country: US (occurrence: US)
  Receive Date: 20210412
  Receipt Date: 20210412
  Transmission Date: 20210717
  Serious: No
  Sender: FDA-Public Use
  Company Number: US-ELI_LILLY_AND_COMPANY-US202104004164

PATIENT
  Sex: Female

DRUGS (2)
  1. TRULICITY [Suspect]
     Active Substance: DULAGLUTIDE
     Indication: PRODUCT USED FOR UNKNOWN INDICATION
     Dosage: 0.75 MG, UNKNOWN
     Route: 065
     Dates: end: 20210328
  2. ARMOUR THYROID [Interacting]
     Active Substance: THYROID, PORCINE
     Indication: THYROID CANCER

REACTIONS (13)
  - Visual impairment [Unknown]
  - Strabismus [Unknown]
  - Inappropriate affect [Unknown]
  - Off label use [Unknown]
  - Feeding disorder [Unknown]
  - Pollakiuria [Unknown]
  - Hypersomnia [Unknown]
  - Frequent bowel movements [Unknown]
  - Ulcer [Unknown]
  - Blood glucose increased [Unknown]
  - Headache [Unknown]
  - Fatigue [Unknown]
  - Abdominal pain upper [Unknown]
